FAERS Safety Report 8299498-0 (Version None)
Quarter: 2012Q2

REPORT INFORMATION
  Report Type: 
  Country: None (occurrence: None)
  Receive Date: 20120419
  Receipt Date: 20120417
  Transmission Date: 20120825
  Serious: Yes (Hospitalization)
  Sender: FDA-Public Use
  Company Number: GB-ABBOTT-12P-167-0916131-00

PATIENT
  Sex: Male
  Weight: 82 kg

DRUGS (9)
  1. ADCAL D3 [Concomitant]
     Indication: PROPHYLAXIS
  2. MESALAMINE [Concomitant]
     Indication: CROHN'S DISEASE
  3. CODEINE PHOSPHATE [Concomitant]
     Indication: PAIN
     Dosage: EVERY 4 HOURS (QDS)
  4. MESALAMINE [Concomitant]
     Indication: COLITIS
  5. ADCAL D3 [Concomitant]
     Indication: BONE DISORDER
     Dosage: X 2 (NOT FURTHER SPECIFIED) OD
  6. HUMIRA [Suspect]
     Indication: CROHN'S DISEASE
     Dosage: 160/80, EVERY OTHER WEEK
     Route: 058
     Dates: start: 20101101
  7. HUMIRA [Suspect]
     Dosage: EVERY WEEK
     Route: 058
     Dates: end: 20120313
  8. HUMIRA [Suspect]
  9. CYCLIZINE [Concomitant]
     Indication: NAUSEA
     Dosage: UP TO THREE TIMES DAILY (TDS)

REACTIONS (3)
  - MALAISE [None]
  - CROHN'S DISEASE [None]
  - DRUG INEFFECTIVE [None]
